FAERS Safety Report 9127763 (Version 2)
Quarter: 2014Q1

REPORT INFORMATION
  Report Type: Spontaneous
  Country: US (occurrence: US)
  Receive Date: 20130228
  Receipt Date: 20140228
  Transmission Date: 20141002
  Serious: Yes (Hospitalization)
  Sender: FDA-Public Use
  Company Number: US-GLAXOSMITHKLINE-A0998022A

PATIENT
  Age: 52 Year
  Sex: Female

DRUGS (3)
  1. LAMICTAL [Suspect]
     Indication: CONVULSION
     Dosage: 200MG TWICE PER DAY
     Route: 048
     Dates: start: 2006
  2. NORVASC [Concomitant]
  3. LISINOPRIL + HYDROCHLOROTHIAZIDE [Concomitant]

REACTIONS (2)
  - Convulsion [Unknown]
  - Treatment noncompliance [Unknown]
